FAERS Safety Report 25689950 (Version 2)
Quarter: 2025Q3

REPORT INFORMATION
  Report Type: Spontaneous
  Country: US (occurrence: US)
  Receive Date: 20250818
  Receipt Date: 20250819
  Transmission Date: 20251021
  Serious: Yes (Hospitalization, Other)
  Sender: MYLAN
  Company Number: US-MYLANLABS-2025M1069151

PATIENT
  Sex: Male
  Weight: 103.42 kg

DRUGS (12)
  1. ZOLOFT [Suspect]
     Active Substance: SERTRALINE HYDROCHLORIDE
     Indication: Panic attack
     Dosage: UNK, QD (ONCE A DAY FOR A WEEK)
  2. ZOLOFT [Suspect]
     Active Substance: SERTRALINE HYDROCHLORIDE
     Dosage: UNK, QD (ONCE A DAY FOR A WEEK)
     Route: 065
  3. ZOLOFT [Suspect]
     Active Substance: SERTRALINE HYDROCHLORIDE
     Dosage: UNK, QD (ONCE A DAY FOR A WEEK)
     Route: 065
  4. ZOLOFT [Suspect]
     Active Substance: SERTRALINE HYDROCHLORIDE
     Dosage: UNK, QD (ONCE A DAY FOR A WEEK)
  5. IRBESARTAN [Concomitant]
     Active Substance: IRBESARTAN
  6. IRBESARTAN [Concomitant]
     Active Substance: IRBESARTAN
     Route: 065
  7. IRBESARTAN [Concomitant]
     Active Substance: IRBESARTAN
     Route: 065
  8. IRBESARTAN [Concomitant]
     Active Substance: IRBESARTAN
  9. METOPROLOL [Concomitant]
     Active Substance: METOPROLOL
  10. METOPROLOL [Concomitant]
     Active Substance: METOPROLOL
     Route: 065
  11. METOPROLOL [Concomitant]
     Active Substance: METOPROLOL
     Route: 065
  12. METOPROLOL [Concomitant]
     Active Substance: METOPROLOL

REACTIONS (3)
  - Mental disorder [Recovered/Resolved]
  - Suicidal ideation [Recovered/Resolved]
  - Product substitution issue [Unknown]
